FAERS Safety Report 5623131-7 (Version None)
Quarter: 2008Q1

REPORT INFORMATION
  Report Type: 
  Country: None (occurrence: None)
  Receive Date: 20080212
  Receipt Date: 20080204
  Transmission Date: 20080703
  Serious: Yes (Death)
  Sender: FDA-Public Use
  Company Number: B0506356A

PATIENT
  Age: 52 Year
  Sex: Female

DRUGS (3)
  1. FLOLAN [Suspect]
     Indication: PULMONARY HYPERTENSION
     Route: 042
     Dates: start: 20070114, end: 20070114
  2. FLOLAN [Suspect]
     Route: 042
     Dates: start: 20070115, end: 20070115
  3. FLOLAN [Suspect]
     Route: 042
     Dates: start: 20070116, end: 20070116

REACTIONS (1)
  - PULMONARY HYPERTENSION [None]
